FAERS Safety Report 6772326-8 (Version None)
Quarter: 2010Q2

REPORT INFORMATION
  Report Type: 
  Country: None (occurrence: None)
  Receive Date: 20100616
  Receipt Date: 20091203
  Transmission Date: 20101027
  Serious: No
  Sender: FDA-Public Use
  Company Number: US-ASTRAZENECA-2009SE30087

PATIENT
  Age: 13978 Day
  Sex: Female
  Weight: 88.5 kg

DRUGS (16)
  1. PULMICORT FLEXHALER [Suspect]
     Indication: ASTHMA
     Route: 055
     Dates: start: 20091003, end: 20091028
  2. PULMICORT FLEXHALER [Suspect]
     Route: 055
     Dates: start: 20091028
  3. PERCOCET [Concomitant]
  4. ALBUTEROL [Concomitant]
  5. ALBUTEROL [Concomitant]
  6. IPRATROPIUM [Concomitant]
  7. TESSALON [Concomitant]
  8. BUPRION [Concomitant]
  9. CLONAZEPINE [Concomitant]
  10. NEXIUM [Concomitant]
  11. FLONASE [Concomitant]
  12. LAMICTAL [Concomitant]
  13. SINGULAIR [Concomitant]
  14. TOPAMAX [Concomitant]
  15. NITROFURANTOIN MACRO [Concomitant]
  16. PHENAZOPYRIDINE HCL TAB [Concomitant]

REACTIONS (3)
  - BREAST PAIN [None]
  - BREAST TENDERNESS [None]
  - URINARY RETENTION [None]
